FAERS Safety Report 12607733 (Version 1)
Quarter: 2016Q3

REPORT INFORMATION
  Report Type: Spontaneous
  Country: US (occurrence: US)
  Receive Date: 20160729
  Receipt Date: 20160729
  Transmission Date: 20161109
  Serious: No
  Sender: FDA-Public Use
  Company Number: US-ASTRAZENECA-2015SE87151

PATIENT
  Age: 656 Month
  Sex: Female
  Weight: 46.3 kg

DRUGS (2)
  1. UNSPECIFIED [Concomitant]
     Active Substance: UNSPECIFIED INGREDIENT
  2. TUDORZA PRESSAIR [Suspect]
     Active Substance: ACLIDINIUM BROMIDE
     Indication: CHRONIC OBSTRUCTIVE PULMONARY DISEASE
     Dosage: 400 UG, 1 PUFF TWICE A DAY
     Route: 055
     Dates: start: 20150903

REACTIONS (3)
  - Dysgeusia [Unknown]
  - Drug ineffective [Unknown]
  - Device malfunction [Unknown]

NARRATIVE: CASE EVENT DATE: 201509
